FAERS Safety Report 6871128-1 (Version None)
Quarter: 2010Q3

REPORT INFORMATION
  Report Type: 
  Country: None (occurrence: None)
  Receive Date: 20100723
  Receipt Date: 20100714
  Transmission Date: 20110219
  Serious: Yes (Hospitalization)
  Sender: FDA-Public Use
  Company Number: US-ROCHE-711797

PATIENT
  Sex: Male
  Weight: 82.4 kg

DRUGS (11)
  1. BEVACIZUMAB [Suspect]
     Indication: PROSTATE CANCER METASTATIC
     Route: 042
     Dates: start: 20100329
  2. BEVACIZUMAB [Suspect]
     Dosage: DOSE FORM IFUSION
     Route: 042
     Dates: start: 20100419
  3. BEVACIZUMAB [Suspect]
     Dosage: DOSE FORM : INFUSION
     Route: 042
     Dates: start: 20100510
  4. BEVACIZUMAB [Suspect]
     Dosage: DOSE FORM INFUSION
     Route: 042
     Dates: end: 20100601
  5. LUPRON [Concomitant]
     Dosage: DOSE: 22.5
     Dates: start: 20100329
  6. CASODEX [Concomitant]
     Dates: start: 20100329
  7. ATIVAN [Concomitant]
     Indication: SOMNOLENCE
     Dosage: FREQUENCY: RARELY
     Route: 048
  8. LEVITRA [Concomitant]
     Indication: ERECTILE DYSFUNCTION
     Dosage: FREQUENCY: AS NECESSARY
     Route: 048
  9. MOTRIN [Concomitant]
     Indication: PAIN
     Dosage: FREQUENCY: AS NECESSARY
     Route: 048
  10. TYLENOL [Concomitant]
     Indication: HEADACHE
     Route: 048
     Dates: start: 20100417
  11. AMBIEN CR [Concomitant]
     Indication: INSOMNIA
     Route: 048
     Dates: start: 20100601

REACTIONS (4)
  - CONVULSION [None]
  - NAUSEA [None]
  - TENDONITIS [None]
  - VOMITING [None]
